FAERS Safety Report 13644421 (Version 1)
Quarter: 2017Q2

REPORT INFORMATION
  Report Type: Spontaneous
  Country: US (occurrence: US)
  Receive Date: 20170612
  Receipt Date: 20170612
  Transmission Date: 20170830
  Serious: No
  Sender: FDA-Public Use
  Company Number: US-ROCHE-1352086

PATIENT
  Sex: Female

DRUGS (8)
  1. TYKERB [Concomitant]
     Active Substance: LAPATINIB DITOSYLATE
     Indication: BREAST CANCER
     Route: 048
     Dates: start: 20130825
  2. WELCHOL [Concomitant]
     Active Substance: COLESEVELAM HYDROCHLORIDE
  3. XELODA [Suspect]
     Active Substance: CAPECITABINE
     Indication: BREAST CANCER
     Dosage: 2 WEEK ON AND 1 WEEK OFF.
     Route: 048
     Dates: start: 20130823
  4. NEXIUM [Concomitant]
     Active Substance: ESOMEPRAZOLE MAGNESIUM
  5. TYLENOL [Concomitant]
     Active Substance: ACETAMINOPHEN
  6. ZESTORETIC [Concomitant]
     Active Substance: HYDROCHLOROTHIAZIDE\LISINOPRIL
  7. CARVEDILOL. [Concomitant]
     Active Substance: CARVEDILOL
  8. LEVETIRACETAM. [Concomitant]
     Active Substance: LEVETIRACETAM

REACTIONS (2)
  - Neuropathy peripheral [Not Recovered/Not Resolved]
  - Muscle spasms [Unknown]
